FAERS Safety Report 8912879 (Version 1)
Quarter: 2012Q4

REPORT INFORMATION
  Report Type: 
  Country: US (occurrence: US)
  Receive Date: 20121116
  Receipt Date: 20121116
  Transmission Date: 20130627
  Serious: Yes (Death)
  Sender: FDA-Public Use
  Company Number: US-GLAXOSMITHKLINE-A0999032A

PATIENT
  Age: 57 Year
  Sex: Female

DRUGS (1)
  1. FLOLAN [Suspect]
     Indication: PRODUCT USED FOR UNKNOWN INDICATION
     Dosage: 24NGKM Continuous
     Route: 042
     Dates: start: 20090414

REACTIONS (3)
  - Death [Fatal]
  - Confusional state [Unknown]
  - Tremor [Unknown]
